FAERS Safety Report 17798918 (Version 1)
Quarter: 2020Q2

REPORT INFORMATION
  Report Type: Spontaneous
  Country: CN (occurrence: CN)
  Receive Date: 20200518
  Receipt Date: 20200518
  Transmission Date: 20200714
  Serious: Yes (Other)
  Sender: FDA-Public Use
  Company Number: CN-ASPEN-GLO2020CN004967

PATIENT
  Age: 15 Year
  Sex: Male

DRUGS (8)
  1. ATG [Suspect]
     Active Substance: LAPINE T-LYMPHOCYTE IMMUNE GLOBULIN
     Indication: BONE MARROW CONDITIONING REGIMEN
     Dosage: 2.5 MG/KG -4D TO -3D
     Route: 065
  2. TACROLIMUS. [Suspect]
     Active Substance: TACROLIMUS
     Indication: PROPHYLAXIS AGAINST GRAFT VERSUS HOST DISEASE
     Dosage: 0.5 G, BID
     Route: 065
  3. BUSULFAN. [Suspect]
     Active Substance: BUSULFAN
     Indication: BONE MARROW CONDITIONING REGIMEN
     Dosage: 3.2 MG/(KG.H), 1 DOSE 6 HOURS
     Route: 065
     Dates: start: 20180920, end: 20180923
  4. MYCOPHENOLATE MOFETIL. [Suspect]
     Active Substance: MYCOPHENOLATE MOFETIL
     Indication: PROPHYLAXIS AGAINST GRAFT VERSUS HOST DISEASE
     Dosage: 0.5 G, BID
     Route: 065
  5. OXIRACETAM [Suspect]
     Active Substance: OXIRACETAM
     Indication: PROPHYLAXIS
     Dosage: 0.8 G, BID
     Route: 048
  6. LEVETIRACETAM. [Suspect]
     Active Substance: LEVETIRACETAM
     Indication: PROPHYLAXIS
     Dosage: 0.75 G, BID
     Route: 048
  7. FLUDARABINE [Suspect]
     Active Substance: FLUDARABINE PHOSPHATE
     Indication: BONE MARROW CONDITIONING REGIMEN
     Dosage: 30 MG/M2 -6D TO -3D
     Route: 065
  8. CYCLOPHOSPHAMIDE. [Suspect]
     Active Substance: CYCLOPHOSPHAMIDE
     Indication: BONE MARROW CONDITIONING REGIMEN
     Dosage: 50 MG/KG -3D TO -2D, AND +2D TO +3D AFTER REINFUSION
     Route: 065

REACTIONS (3)
  - Product use in unapproved indication [Unknown]
  - Acinetobacter infection [Recovered/Resolved]
  - Sepsis [Recovered/Resolved]

NARRATIVE: CASE EVENT DATE: 20180920
